FAERS Safety Report 13405368 (Version 2)
Quarter: 2017Q2

REPORT INFORMATION
  Report Type: Spontaneous
  Country: FR (occurrence: FR)
  Receive Date: 20170405
  Receipt Date: 20170428
  Transmission Date: 20170830
  Serious: Yes (Hospitalization)
  Sender: FDA-Public Use
  Company Number: FR-ELI_LILLY_AND_COMPANY-FR201703012062

PATIENT
  Age: 69 Year
  Sex: Male

DRUGS (3)
  1. STAGID [Suspect]
     Active Substance: METFORMIN PAMOATE
     Dosage: 2 DF, QD
     Route: 065
  2. TRULICITY [Suspect]
     Active Substance: DULAGLUTIDE
     Indication: TYPE 2 DIABETES MELLITUS
     Dosage: 1.5 MG, WEEKLY (1/W)
     Route: 065
  3. STAGID [Suspect]
     Active Substance: METFORMIN PAMOATE
     Indication: PRODUCT USED FOR UNKNOWN INDICATION
     Dosage: 1 DF, QD
     Route: 065
     Dates: start: 2007

REACTIONS (6)
  - Clostridium difficile infection [Unknown]
  - Colitis [Unknown]
  - Diarrhoea [Unknown]
  - Abdominal pain [Unknown]
  - Breath odour [Unknown]
  - Flatulence [Unknown]
